FAERS Safety Report 6083768-0 (Version None)
Quarter: 2009Q1

REPORT INFORMATION
  Report Type: 
  Country: None (occurrence: None)
  Receive Date: 20090219
  Receipt Date: 20081106
  Transmission Date: 20090719
  Serious: No
  Sender: FDA-Public Use
  Company Number: US-ASTRAZENECA-2008UW24821

PATIENT
  Age: 37 Year
  Sex: Male
  Weight: 87.5 kg

DRUGS (6)
  1. ACCOLATE [Suspect]
     Indication: URTICARIA
     Dosage: 20 MG
     Route: 048
     Dates: start: 20061106
  2. ZYRTEC [Concomitant]
  3. ZANTAC [Concomitant]
  4. AMARYL [Concomitant]
  5. DIOVAN [Concomitant]
  6. TOPROL-XL [Concomitant]

REACTIONS (4)
  - ABDOMINAL PAIN [None]
  - DISCOMFORT [None]
  - FLATULENCE [None]
  - NAUSEA [None]
